FAERS Safety Report 8305940-9 (Version None)
Quarter: 2012Q1

REPORT INFORMATION
  Report Type: 
  Country: None (occurrence: None)
  Receive Date: 20120326
  Receipt Date: 20110923
  Transmission Date: 20120608
  Serious: Yes (Other)
  Sender: FDA-Public Use
  Company Number: PHEH2011US04981

PATIENT
  Sex: Female

DRUGS (2)
  1. PROMETRIUM [Suspect]
     Dosage: ORAL
     Route: 048
  2. VIVELLE-DOT [Suspect]
     Dosage: TRANSDERMAL
     Route: 062

REACTIONS (2)
  - DEPRESSED MOOD [None]
  - VAGINAL HAEMORRHAGE [None]
